FAERS Safety Report 16994078 (Version 2)
Quarter: 2021Q2

REPORT INFORMATION
  Report Type: Spontaneous
  Country: TR (occurrence: TR)
  Receive Date: 20191105
  Receipt Date: 20210504
  Transmission Date: 20210716
  Serious: Yes (Other)
  Sender: FDA-Public Use
  Company Number: NVSC2019TR022842

PATIENT
  Age: 71 Year
  Sex: Male

DRUGS (5)
  1. LAMICTAL [Concomitant]
     Active Substance: LAMOTRIGINE
     Dosage: 2 DF (IN THE EACH MORNING AND EVENING)
     Route: 065
  2. LAMICTAL [Concomitant]
     Active Substance: LAMOTRIGINE
     Dosage: 1.5 MG (AT NOON, AND CONTINUED TO USE THE DRUG SINCE HE WAS ABOUT 20 YEARS OLD)
     Route: 065
  3. LAMICTAL [Concomitant]
     Active Substance: LAMOTRIGINE
     Indication: PRODUCT USED FOR UNKNOWN INDICATION
     Route: 065
  4. TEGRETOL [Suspect]
     Active Substance: CARBAMAZEPINE
     Indication: EPILEPSY
     Dosage: (2 TB MORNINGS, 1,5 TB AT NOON, 2 TB EVENINGS)
     Route: 048
  5. EPIXX [Concomitant]
     Active Substance: LEVETIRACETAM
     Indication: PRODUCT USED FOR UNKNOWN INDICATION
     Dosage: 3 DF, TID
     Route: 065

REACTIONS (6)
  - Loss of consciousness [Unknown]
  - Illness [Unknown]
  - Product dose omission issue [Unknown]
  - Drug ineffective [Unknown]
  - Dizziness [Unknown]
  - Fall [Unknown]
